FAERS Safety Report 7457748-4 (Version None)
Quarter: 2011Q2

REPORT INFORMATION
  Report Type: 
  Country: None (occurrence: None)
  Receive Date: 20110504
  Receipt Date: 20110428
  Transmission Date: 20111010
  Serious: No
  Sender: FDA-Public Use
  Company Number: US-PFIZER INC-2011076190

PATIENT
  Age: 82 Year
  Sex: Female

DRUGS (1)
  1. DIFLUCAN [Suspect]

REACTIONS (1)
  - SOMNOLENCE [None]
